FAERS Safety Report 5795225-7 (Version None)
Quarter: 2008Q2

REPORT INFORMATION
  Report Type: 
  Country: None (occurrence: None)
  Receive Date: 20080630
  Receipt Date: 20080625
  Transmission Date: 20081010
  Serious: Yes (Other)
  Sender: FDA-Public Use
  Company Number: JP-BRISTOL-MYERS SQUIBB COMPANY-14243745

PATIENT
  Age: 6 Decade
  Sex: Female

DRUGS (3)
  1. BARACLUDE [Suspect]
     Indication: HEPATITIS B
     Route: 048
     Dates: start: 20080602
  2. LANSOPRAZOLE + AMOXICILLIN + CLARITHROMYCIN [Suspect]
     Route: 048
     Dates: start: 20080619, end: 20080625
  3. URSO 250 [Concomitant]
     Route: 048

REACTIONS (1)
  - NEUTROPENIA [None]
